FAERS Safety Report 4319171-0 (Version None)
Quarter: 2004Q1

REPORT INFORMATION
  Report Type: 
  Country: None (occurrence: None)
  Receive Date: 20040315
  Receipt Date: 20040102
  Transmission Date: 20041129
  Serious: Yes (Life-Threatening, Hospitalization, Other)
  Sender: FDA-Public Use
  Company Number: 2003187274US

PATIENT
  Age: 50 Year
  Sex: Female
  Weight: 73.9 kg

DRUGS (1)
  1. BEXTRA [Suspect]
     Dosage: 20 MG, QD
     Dates: start: 20031012, end: 20031114

REACTIONS (2)
  - ANAPHYLACTIC REACTION [None]
  - ANGIONEUROTIC OEDEMA [None]
